FAERS Safety Report 9130970 (Version 1)
Quarter: 2013Q1

REPORT INFORMATION
  Report Type: Spontaneous
  Country: FR (occurrence: FR)
  Receive Date: 20130301
  Receipt Date: 20130301
  Transmission Date: 20140127
  Serious: Yes (Death, Hospitalization)
  Sender: FDA-Public Use
  Company Number: FR-JNJFOC-20130212083

PATIENT
  Age: 73 Year
  Sex: Male

DRUGS (3)
  1. INFLIXIMAB, RECOMBINANT [Suspect]
     Indication: PSORIATIC ARTHROPATHY
     Route: 042
  2. LEFLUNOMIDE [Suspect]
     Indication: PSORIATIC ARTHROPATHY
     Route: 065
  3. PREDNISONE [Suspect]
     Indication: PSORIATIC ARTHROPATHY
     Route: 065

REACTIONS (2)
  - Multi-organ failure [Fatal]
  - Disseminated tuberculosis [Fatal]
